FAERS Safety Report 9985062 (Version 1)
Quarter: 2014Q1

REPORT INFORMATION
  Report Type: Report from Study
  Country: US (occurrence: US)
  Receive Date: 20140307
  Receipt Date: 20140307
  Transmission Date: 20141002
  Serious: No
  Sender: FDA-Public Use
  Company Number: US-ABBVIE-13P-163-1185162-00

PATIENT
  Age: 52 Year
  Sex: Female

DRUGS (6)
  1. HUMIRA [Suspect]
     Indication: CROHN^S DISEASE
     Dates: start: 201101
  2. MEDROL [Suspect]
     Indication: SINUSITIS
     Dosage: FOR 7 DAYS
     Dates: start: 20131130
  3. MEDROL [Suspect]
     Indication: EAR INFECTION
  4. CEFZIL [Suspect]
     Indication: SINUSITIS
     Dosage: FOR 7 DAYS
     Dates: start: 20131130
  5. CEFZIL [Suspect]
     Indication: EAR INFECTION
  6. UNKNOWN DRUG [Concomitant]
     Indication: CONTRACEPTION

REACTIONS (4)
  - Ear pain [Recovered/Resolved]
  - Fungal infection [Not Recovered/Not Resolved]
  - Sinusitis [Recovered/Resolved]
  - Ear infection [Recovered/Resolved]
